FAERS Safety Report 9416990 (Version 2)
Quarter: 2013Q3

REPORT INFORMATION
  Report Type: Spontaneous
  Country: US (occurrence: None)
  Receive Date: 20130722
  Receipt Date: 20130820
  Transmission Date: 20140515
  Serious: Yes (Other)
  Sender: FDA-Public Use
  Company Number: A1033909A

PATIENT
  Age: 50 Year
  Sex: Female
  Weight: 148.9 kg

DRUGS (12)
  1. METHYLCELLULOSE [Suspect]
     Dosage: 2 AT NIGHT
     Route: 048
     Dates: start: 20130720, end: 20130721
  2. CLONAZEPAM [Concomitant]
  3. FLUTICASONE PROPIONATE [Concomitant]
  4. VITAMIN D [Concomitant]
  5. ESOMEPRAZOLE [Concomitant]
  6. THYROXINE SODIUM [Concomitant]
  7. FISH OIL [Concomitant]
  8. CYANOCOBALAMIN [Concomitant]
  9. VITAMIN B COMPLEX [Concomitant]
  10. VITAMIN E [Concomitant]
  11. CALCIUM SALT [Concomitant]
  12. IBUPROFEN [Concomitant]

REACTIONS (5)
  - Feeling abnormal [None]
  - Restlessness [None]
  - Insomnia [None]
  - Fatigue [None]
  - Disease prodromal stage [None]
